FAERS Safety Report 8802991 (Version 2)
Quarter: 2014Q2

REPORT INFORMATION
  Report Type: Spontaneous
  Country: JP (occurrence: JP)
  Receive Date: 20120924
  Receipt Date: 20131017
  Transmission Date: 20141212
  Serious: Yes (Death, Other)
  Sender: FDA-Public Use
  Company Number: JP-PFIZER INC-2012232699

PATIENT
  Age: 41 Year
  Sex: Female
  Weight: 47 kg

DRUGS (3)
  1. METHYLPREDNISOLONE SODIUM SUCCINATE [Suspect]
     Dosage: 10 MG/KG, DAILY, EVERY TWO WEEKS
     Dates: start: 1998
  2. PREDNISOLONE [Suspect]
     Dosage: 20 MG, DAILY
     Route: 048
  3. PREDNISOLONE [Suspect]
     Dosage: 13 MG, DAILY
     Route: 048

REACTIONS (1)
  - Pneumatosis intestinalis [Fatal]
